FAERS Safety Report 10186293 (Version 3)
Quarter: 2014Q3

REPORT INFORMATION
  Report Type: Spontaneous
  Country: US (occurrence: US)
  Receive Date: 20140521
  Receipt Date: 20140918
  Transmission Date: 20150326
  Serious: Yes (Life-Threatening, Hospitalization, Other)
  Sender: FDA-Public Use
  Company Number: PHEH2014US010121

PATIENT
  Age: 50 Year
  Sex: Female

DRUGS (5)
  1. ONDANSETRON [Concomitant]
     Active Substance: ONDANSETRON
     Dosage: 4 MG, PRN
  2. HYDROXYZINE HCL [Concomitant]
     Active Substance: HYDROXYZINE HYDROCHLORIDE
     Indication: PRURITUS
  3. GILENYA [Suspect]
     Active Substance: FINGOLIMOD HYDROCHLORIDE
     Indication: RELAPSING-REMITTING MULTIPLE SCLEROSIS
     Dosage: 0.5 MG, QD
     Route: 048
     Dates: start: 201203
  4. CYMBALTA [Concomitant]
     Active Substance: DULOXETINE HYDROCHLORIDE
  5. CYMBALTA [Concomitant]
     Active Substance: DULOXETINE HYDROCHLORIDE
     Indication: PHANTOM PAIN
     Dosage: 30 MG, QD
     Dates: end: 20140422

REACTIONS (40)
  - Liver injury [Recovering/Resolving]
  - Abdominal distension [Unknown]
  - Dyspepsia [Unknown]
  - Alanine aminotransferase increased [Unknown]
  - Vomiting [Unknown]
  - Malaise [Unknown]
  - Biopsy liver abnormal [Unknown]
  - Blood bilirubin increased [Unknown]
  - Faeces pale [Recovered/Resolved]
  - Abdominal discomfort [Unknown]
  - Gallbladder disorder [Unknown]
  - Pain [Unknown]
  - Nausea [Unknown]
  - Blood pressure increased [Unknown]
  - Headache [Unknown]
  - Anxiety [Unknown]
  - White blood cell count decreased [Unknown]
  - Hepatomegaly [Unknown]
  - Abdominal pain upper [Unknown]
  - Decreased appetite [Not Recovered/Not Resolved]
  - Aspartate aminotransferase increased [Unknown]
  - Cholecystitis [Unknown]
  - Palmar erythema [Unknown]
  - Cytomegalovirus test positive [Unknown]
  - Fatigue [Unknown]
  - Hepatitis [Unknown]
  - Eye colour change [Unknown]
  - Blood alkaline phosphatase increased [Unknown]
  - Antinuclear antibody positive [Unknown]
  - Insomnia [Unknown]
  - Jaundice [Unknown]
  - Chromaturia [Recovered/Resolved]
  - Pruritus generalised [Recovered/Resolved]
  - Ocular icterus [Unknown]
  - Pyrexia [Unknown]
  - Cholelithiasis [Unknown]
  - Influenza like illness [Unknown]
  - Arthralgia [Unknown]
  - Hepatic enzyme abnormal [Not Recovered/Not Resolved]
  - Hypovitaminosis [Unknown]

NARRATIVE: CASE EVENT DATE: 201303
